FAERS Safety Report 7286948-1 (Version None)
Quarter: 2011Q1

REPORT INFORMATION
  Report Type: 
  Country: None (occurrence: None)
  Receive Date: 20110211
  Receipt Date: 20110203
  Transmission Date: 20110831
  Serious: Yes (Other)
  Sender: FDA-Public Use
  Company Number: US-BIOGENIDEC-2011BI004449

PATIENT
  Age: 53 Year
  Sex: Female

DRUGS (3)
  1. AVONEX [Suspect]
     Indication: MULTIPLE SCLEROSIS
     Route: 030
     Dates: start: 20000201, end: 20030101
  2. AVONEX [Suspect]
     Route: 030
     Dates: start: 20030101, end: 20040101
  3. AVONEX [Suspect]
     Route: 030
     Dates: start: 20040101, end: 20091101

REACTIONS (13)
  - DEPRESSION [None]
  - DIZZINESS [None]
  - MULTIPLE SCLEROSIS RELAPSE [None]
  - CLOSTRIDIUM DIFFICILE COLITIS [None]
  - INTESTINAL FUNCTIONAL DISORDER [None]
  - WEIGHT DECREASED [None]
  - HAEMATOCHEZIA [None]
  - SENSORY DISTURBANCE [None]
  - BLOOD THYROID STIMULATING HORMONE INCREASED [None]
  - CHILLS [None]
  - FATIGUE [None]
  - URINARY TRACT INFECTION [None]
  - DRUG INEFFECTIVE [None]
